FAERS Safety Report 7906854-6 (Version None)
Quarter: 2011Q4

REPORT INFORMATION
  Report Type: 
  Country: None (occurrence: None)
  Receive Date: 20111110
  Receipt Date: 20111031
  Transmission Date: 20120403
  Serious: Yes (Life-Threatening, Hospitalization)
  Sender: FDA-Public Use
  Company Number: JP-PFIZER INC-2011245228

PATIENT
  Age: 54 Year
  Sex: Female
  Weight: 59 kg

DRUGS (7)
  1. UNSEIIN [Suspect]
     Indication: PSORIASIS
     Dosage: 2.5 G, 2X/DAY
     Route: 048
     Dates: start: 20101106, end: 20111001
  2. SAIREI-TO [Suspect]
     Indication: CONTUSION
     Dosage: 3 G, 3X/DAY
     Route: 048
     Dates: start: 20110917, end: 20110921
  3. DEPAS [Suspect]
     Indication: CONTUSION
     Dosage: 0.5 MG, 3X/DAY
     Route: 048
     Dates: start: 20100605, end: 20110921
  4. EPINASTINE HYDROCHLORIDE [Suspect]
     Indication: PSORIASIS
     Dosage: 20 MG, UID/QD
     Route: 048
     Dates: start: 20070421, end: 20111001
  5. CELECOXIB [Suspect]
     Indication: CONTUSION
     Dosage: 100 MG, 2X/DAY
     Route: 048
     Dates: start: 20110917, end: 20110921
  6. AZELASTINE HCL [Suspect]
     Indication: PSORIASIS
     Dosage: 1 MG, UID/QD
     Route: 048
     Dates: start: 20110430, end: 20111001
  7. KEISHIBUKURYOUGAN [Suspect]
     Indication: PSORIASIS
     Dosage: 2.5 G, 2X/DAY
     Route: 048
     Dates: start: 20071201, end: 20111001

REACTIONS (2)
  - HERPES SIMPLEX [None]
  - STEVENS-JOHNSON SYNDROME [None]
